FAERS Safety Report 16446246 (Version 2)
Quarter: 2019Q2

REPORT INFORMATION
  Report Type: Spontaneous
  Country: SK (occurrence: SK)
  Receive Date: 20190618
  Receipt Date: 20190625
  Transmission Date: 20190711
  Serious: Yes (Hospitalization)
  Sender: FDA-Public Use
  Company Number: SK-PFIZER INC-2019252983

PATIENT
  Age: 39 Year
  Sex: Female

DRUGS (3)
  1. EPOETIN ZETA [Suspect]
     Active Substance: ERYTHROPOIETIN
     Indication: MYELODYSPLASTIC SYNDROME
  2. FILGRASTIM [Suspect]
     Active Substance: FILGRASTIM
     Indication: MYELODYSPLASTIC SYNDROME
     Dosage: UNK
  3. EPOETIN ZETA [Suspect]
     Active Substance: ERYTHROPOIETIN
     Indication: MYELOPROLIFERATIVE NEOPLASM
     Dosage: UNK

REACTIONS (4)
  - Product use in unapproved indication [Unknown]
  - Diarrhoea [Recovering/Resolving]
  - Febrile neutropenia [Recovering/Resolving]
  - Mucosal inflammation [Recovering/Resolving]

NARRATIVE: CASE EVENT DATE: 201811
